FAERS Safety Report 9115403 (Version 2)
Quarter: 2013Q2

REPORT INFORMATION
  Report Type: Spontaneous
  Country: US (occurrence: US)
  Receive Date: 20130225
  Receipt Date: 20130506
  Transmission Date: 20140414
  Serious: No
  Sender: FDA-Public Use
  Company Number: US-VERTEX PHARMACEUTICALS INC.-2013-002576

PATIENT
  Age: 63 Year
  Sex: Female
  Weight: 91 kg

DRUGS (12)
  1. INCIVEK [Suspect]
     Indication: HEPATITIS C
     Dosage: 750 MG, TID
     Route: 048
     Dates: start: 20121203
  2. RIBAVIRIN [Suspect]
     Indication: HEPATITIS C
     Dosage: 600 MG AM/400 MG PM
     Dates: start: 20121203
  3. RIBAVIRIN [Suspect]
     Dosage: 800 MG, QD
     Dates: start: 20121231
  4. PEGASYS [Suspect]
     Indication: HEPATITIS C
     Dosage: 180 ?G, QW
     Route: 058
     Dates: start: 20121203
  5. AMLODIPINE [Concomitant]
     Dosage: 5 MG, QD
  6. LUMIGAN [Concomitant]
     Route: 047
  7. COMBIGAN [Concomitant]
     Route: 047
  8. CALCIUM + VIT D [Concomitant]
  9. CELEXA [Concomitant]
  10. CLONIDINE [Concomitant]
  11. LISINOPRIL [Concomitant]
     Dosage: UNK, QD
  12. MIRAPEX [Concomitant]

REACTIONS (4)
  - Weight increased [Recovered/Resolved]
  - Decreased appetite [Unknown]
  - Rash macular [Recovered/Resolved]
  - Red blood cell count decreased [Not Recovered/Not Resolved]
